FAERS Safety Report 6407553-2 (Version None)
Quarter: 2009Q4

REPORT INFORMATION
  Report Type: 
  Country: None (occurrence: None)
  Receive Date: 20091020
  Receipt Date: 20091019
  Transmission Date: 20100525
  Serious: Yes (Life-Threatening, Other)
  Sender: FDA-Public Use
  Company Number: CZ-ROXANE LABORATORIES, INC.-2009-RO-01066RO

PATIENT
  Age: 22 Year
  Sex: Female

DRUGS (13)
  1. CYCLOPHOSPHAMIDE [Suspect]
     Indication: CUTANEOUS VASCULITIS
  2. CYCLOPHOSPHAMIDE [Suspect]
     Indication: SYSTEMIC LUPUS ERYTHEMATOSUS
  3. SOLU-MEDROL [Suspect]
     Indication: CUTANEOUS VASCULITIS
  4. SOLU-MEDROL [Suspect]
     Route: 048
  5. SOLU-MEDROL [Suspect]
     Dosage: 24 MG
     Route: 048
  6. BROAD SPECTRUM ANTIBIOTICS [Concomitant]
     Indication: INFECTION
  7. VIROSTATICS [Concomitant]
     Indication: INFECTION
  8. ANTIMYCOTICS [Concomitant]
     Indication: INFECTION
  9. ALPROSTADIL [Concomitant]
     Indication: CUTANEOUS VASCULITIS
  10. IMMUNOGLOBULIN IVIG [Concomitant]
     Indication: SECONDARY IMMUNODEFICIENCY
     Route: 042
  11. AZATHIOPRINE [Concomitant]
     Indication: SYSTEMIC LUPUS ERYTHEMATOSUS
     Dosage: 50 MG
  12. INSULIN [Concomitant]
     Indication: DIABETES MELLITUS
  13. HORMONE TREATMENT [Concomitant]
     Indication: AMENORRHOEA

REACTIONS (9)
  - AMENORRHOEA [None]
  - ARTHRITIS [None]
  - CELLULITIS [None]
  - DIABETES MELLITUS [None]
  - GASTROENTERITIS SALMONELLA [None]
  - HERPES VIRUS INFECTION [None]
  - SECONDARY IMMUNODEFICIENCY [None]
  - STAPHYLOCOCCAL ABSCESS [None]
  - VULVOVAGINAL CANDIDIASIS [None]
